FAERS Safety Report 8934899 (Version 1)
Quarter: 2012Q4

REPORT INFORMATION
  Report Type: 
  Country: US (occurrence: US)
  Receive Date: 20121129
  Receipt Date: 20121129
  Transmission Date: 20130627
  Serious: Yes (Hospitalization, Other)
  Sender: FDA-Public Use
  Company Number: US-TARO-2012P1052858

PATIENT
  Age: 10 Year
  Sex: Male
  Weight: 43.09 kg

DRUGS (4)
  1. CARBAMAZEPINE TABLETS USP 200 MG [Suspect]
     Indication: CONVULSION
     Route: 048
     Dates: start: 201109, end: 20120801
  2. CARBAMAZEPINE [Suspect]
     Indication: CONVULSION
     Dates: start: 20120803
  3. CARBAMAZEPINE [Suspect]
     Indication: CONVULSION
     Dates: start: 2010
  4. ANTIBIOTIC [Concomitant]

REACTIONS (6)
  - Toxicity to various agents [Recovered/Resolved]
  - Vertigo [Recovered/Resolved]
  - Lethargy [Recovered/Resolved]
  - Confusional state [Recovered/Resolved]
  - Anticonvulsant drug level above therapeutic [None]
  - Ataxia [None]
